FAERS Safety Report 9735391 (Version 1)
Quarter: 2013Q4

REPORT INFORMATION
  Report Type: Spontaneous
  Country: US (occurrence: None)
  Receive Date: 20131205
  Receipt Date: 20131205
  Transmission Date: 20140711
  Serious: No
  Sender: FDA-Public Use
  Company Number: None

PATIENT
  Sex: Female
  Weight: 102.06 kg

DRUGS (11)
  1. MULTAQ [Suspect]
     Indication: ATRIAL FIBRILLATION
     Dates: start: 201111, end: 201304
  2. COUMADIN [Concomitant]
  3. HYDROCHLOROTHIAZIDE [Concomitant]
  4. LEVOXYL [Concomitant]
  5. METFORMIN [Concomitant]
  6. METOPROLOL TARTRATE [Concomitant]
  7. CARDIZEM [Concomitant]
  8. SYMBICORT INHALER [Concomitant]
  9. FISH OIL [Concomitant]
  10. VITAMIN D-3 [Concomitant]
  11. C-PAP MACHINE [Concomitant]

REACTIONS (2)
  - Chronic obstructive pulmonary disease [None]
  - Pulmonary fibrosis [None]
